FAERS Safety Report 22351653 (Version 1)
Quarter: 2023Q2

REPORT INFORMATION
  Report Type: Spontaneous
  Country: BR (occurrence: BR)
  Receive Date: 20230522
  Receipt Date: 20230522
  Transmission Date: 20230722
  Serious: Yes (Other)
  Sender: FDA-Public Use
  Company Number: BR-BoehringerIngelheim-2023-BI-237815

PATIENT
  Age: 76 Year
  Sex: Male

DRUGS (3)
  1. FENOTEROL HYDROBROMIDE\IPRATROPIUM BROMIDE [Suspect]
     Active Substance: FENOTEROL HYDROBROMIDE\IPRATROPIUM BROMIDE
     Indication: Product used for unknown indication
  2. BEROTEC [Suspect]
     Active Substance: FENOTEROL HYDROBROMIDE
     Indication: Product used for unknown indication
  3. ATROVENT [Suspect]
     Active Substance: IPRATROPIUM BROMIDE
     Indication: Product used for unknown indication

REACTIONS (8)
  - Drug dependence [Unknown]
  - Asthma [Unknown]
  - Depression [Unknown]
  - Cardiac disorder [Unknown]
  - Tachycardia [Unknown]
  - Drug intolerance [Unknown]
  - Nervousness [Unknown]
  - Headache [Unknown]
